FAERS Safety Report 5339553-8 (Version None)
Quarter: 2007Q2

REPORT INFORMATION
  Report Type: 
  Country: None (occurrence: None)
  Receive Date: 20070405
  Receipt Date: 20061130
  Transmission Date: 20071010
  Serious: No
  Sender: FDA-Public Use
  Company Number: US200611005504

PATIENT
  Age: 56 Year
  Sex: Male

DRUGS (3)
  1. CYMBALTA [Suspect]
     Indication: ASTHENIA
     Dosage: 30 MG
     Dates: start: 20061109
  2. AMBIEN [Concomitant]
  3. LORAZEPAM [Concomitant]

REACTIONS (4)
  - ANXIETY [None]
  - CONSTIPATION [None]
  - FEELING JITTERY [None]
  - PSYCHOMOTOR HYPERACTIVITY [None]
